FAERS Safety Report 6743493-7 (Version None)
Quarter: 2010Q2

REPORT INFORMATION
  Report Type: 
  Country: None (occurrence: None)
  Receive Date: 20100525
  Receipt Date: 20100517
  Transmission Date: 20101027
  Serious: Yes (Other)
  Sender: FDA-Public Use
  Company Number: 2010SP011835

PATIENT
  Sex: Female
  Weight: 3.2 kg

DRUGS (2)
  1. PEG-INTRON [Suspect]
     Indication: DRUG EXPOSURE DURING PREGNANCY
  2. REBETOL [Suspect]

REACTIONS (2)
  - CEREBRAL CYST [None]
  - PATERNAL DRUGS AFFECTING FOETUS [None]
